FAERS Safety Report 9107932 (Version 1)
Quarter: 2013Q1

REPORT INFORMATION
  Report Type: Spontaneous
  Country: US (occurrence: US)
  Receive Date: 20130221
  Receipt Date: 20130221
  Transmission Date: 20140127
  Serious: Yes (Hospitalization)
  Sender: FDA-Public Use
  Company Number: US-AMGEN-USASP2013010791

PATIENT
  Age: 72 Year
  Sex: Female

DRUGS (1)
  1. EPOGEN [Suspect]
     Indication: RENAL FAILURE CHRONIC
     Dosage: UNK UNK, Q2WK

REACTIONS (3)
  - Influenza [Unknown]
  - Dyspnoea [Unknown]
  - Pulmonary congestion [Unknown]
